FAERS Safety Report 6316925-6 (Version None)
Quarter: 2009Q3

REPORT INFORMATION
  Report Type: 
  Country: None (occurrence: None)
  Receive Date: 20090820
  Receipt Date: 20090814
  Transmission Date: 20100115
  Serious: Yes (Hospitalization)
  Sender: FDA-Public Use
  Company Number: US-PFIZER INC-2009155376

PATIENT
  Sex: Female
  Weight: 90.249 kg

DRUGS (6)
  1. CELECOXIB [Suspect]
     Indication: OSTEOARTHRITIS
     Dosage: 200 MG, 1X/DAY
     Route: 048
     Dates: start: 20080719
  2. CYMBALTA [Concomitant]
     Dosage: 60 MG, UNK
     Route: 048
     Dates: start: 20061129
  3. BYETTA [Concomitant]
     Dosage: 10MCG/0.04CC INJECTION
     Route: 058
     Dates: start: 20080313, end: 20080911
  4. CLARITIN [Concomitant]
     Dosage: 10 MG, 1X/DAY
     Dates: start: 20060128
  5. MULTI-VITAMINS [Concomitant]
     Dosage: DAILY
  6. SODIUM CHLORIDE [Concomitant]
     Dosage: UNK

REACTIONS (1)
  - CHOLECYSTITIS [None]
